FAERS Safety Report 5750464-6 (Version None)
Quarter: 2008Q2

REPORT INFORMATION
  Report Type: 
  Country: None (occurrence: None)
  Receive Date: 20080528
  Receipt Date: 20070828
  Transmission Date: 20081010
  Serious: No
  Sender: FDA-Public Use
  Company Number: US-KINGPHARMUSA00001-K200701106

PATIENT

DRUGS (4)
  1. AVINZA [Suspect]
     Indication: BACK PAIN
     Dosage: 60 MG, QD
     Route: 048
     Dates: start: 20070817
  2. NAPROXEN [Concomitant]
     Indication: INFLAMMATION
     Dosage: 500 MG, BID
     Route: 048
  3. MAXZIDE [Concomitant]
     Indication: FLUID RETENTION
     Dosage: 75/50, QD
     Route: 048
  4. BACLOFEN [Concomitant]
     Indication: MUSCLE RELAXANT THERAPY
     Dosage: 10 MG, TID
     Route: 048

REACTIONS (2)
  - ERYTHEMA [None]
  - OEDEMA PERIPHERAL [None]
